FAERS Safety Report 8270188-3 (Version None)
Quarter: 2012Q2

REPORT INFORMATION
  Report Type: 
  Country: None (occurrence: None)
  Receive Date: 20120410
  Receipt Date: 20120402
  Transmission Date: 20120825
  Serious: Yes (Disabling)
  Sender: FDA-Public Use
  Company Number: GB-JNJFOC-20120401672

PATIENT
  Sex: Male
  Weight: 44.5 kg

DRUGS (1)
  1. CONCERTA [Suspect]
     Indication: ATTENTION DEFICIT/HYPERACTIVITY DISORDER
     Route: 048
     Dates: start: 20120221, end: 20120302

REACTIONS (5)
  - PALLOR [None]
  - DECREASED APPETITE [None]
  - DIZZINESS [None]
  - MALAISE [None]
  - PARAESTHESIA [None]
